FAERS Safety Report 7502026-8 (Version None)
Quarter: 2011Q2

REPORT INFORMATION
  Report Type: 
  Country: None (occurrence: None)
  Receive Date: 20110523
  Receipt Date: 20110523
  Transmission Date: 20111010
  Serious: No
  Sender: FDA-Public Use
  Company Number: None

PATIENT
  Sex: Female
  Weight: 106.5953 kg

DRUGS (2)
  1. FLUTICASONE SPRAY 50MCG [Suspect]
     Indication: MULTIPLE ALLERGIES
     Dosage: 1 SPRAY EA NARE DAILY  ONCE DAILY  NASAL SPRAY
     Route: 045
     Dates: start: 20110201, end: 20110422
  2. FLUTICASONE SPRAY 50MCG [Suspect]
     Indication: SINUSITIS
     Dosage: 1 SPRAY EA NARE DAILY  ONCE DAILY  NASAL SPRAY
     Route: 045
     Dates: start: 20110201, end: 20110422

REACTIONS (1)
  - EPISTAXIS [None]
